FAERS Safety Report 16206922 (Version 1)
Quarter: 2019Q2

REPORT INFORMATION
  Report Type: Spontaneous
  Country: US (occurrence: US)
  Receive Date: 20190417
  Receipt Date: 20190417
  Transmission Date: 20190711
  Serious: Yes (Other)
  Sender: FDA-Public Use
  Company Number: US-JNJFOC-20190415993

PATIENT
  Age: 47 Year
  Sex: Female
  Weight: 181.44 kg

DRUGS (4)
  1. TYLENOL COLD PLUS FLU SEVERE NIGHT [ACETAMINOPHEN\CHLORPHENIRAMINE MALEATE\DEXTROMETHORPHAN\PHENYLEPHRINE HYDROCHLORIDE] [Suspect]
     Active Substance: ACETAMINOPHEN\CHLORPHENIRAMINE MALEATE\DEXTROMETHORPHAN\PHENYLEPHRINE HYDROCHLORIDE
     Indication: SINUS DISORDER
     Dosage: PRODUCT USE FREQUENCY: EVERY OTHER DAY
     Route: 048
     Dates: start: 20190401, end: 20190408
  2. TYLENOL COLD PLUS FLU SEVERE DAY [ACETAMINOPHEN\DEXTROMETHORPHAN HYDROBROMIDE\GUAIFENESIN\PHENYLEPHRINE HYDROCHLORIDE] [Suspect]
     Active Substance: ACETAMINOPHEN\DEXTROMETHORPHAN HYDROBROMIDE\GUAIFENESIN\PHENYLEPHRINE HYDROCHLORIDE
     Indication: SINUS DISORDER
     Dosage: 2 PILLS EVERY OTHER DAY
     Route: 048
     Dates: start: 20190401, end: 20190408
  3. TYLENOL COLD PLUS FLU SEVERE DAY [ACETAMINOPHEN\DEXTROMETHORPHAN HYDROBROMIDE\GUAIFENESIN\PHENYLEPHRINE HYDROCHLORIDE] [Suspect]
     Active Substance: ACETAMINOPHEN\DEXTROMETHORPHAN HYDROBROMIDE\GUAIFENESIN\PHENYLEPHRINE HYDROCHLORIDE
     Indication: NASOPHARYNGITIS
     Dosage: 2 PILLS EVERY OTHER DAY
     Route: 048
     Dates: start: 20190401, end: 20190408
  4. TYLENOL COLD PLUS FLU SEVERE NIGHT [ACETAMINOPHEN\CHLORPHENIRAMINE MALEATE\DEXTROMETHORPHAN\PHENYLEPHRINE HYDROCHLORIDE] [Suspect]
     Active Substance: ACETAMINOPHEN\CHLORPHENIRAMINE MALEATE\DEXTROMETHORPHAN\PHENYLEPHRINE HYDROCHLORIDE
     Indication: NASOPHARYNGITIS
     Dosage: PRODUCT USE FREQUENCY: EVERY OTHER DAY
     Route: 048
     Dates: start: 20190401, end: 20190408

REACTIONS (2)
  - Inappropriate schedule of product administration [Unknown]
  - Seizure [Not Recovered/Not Resolved]

NARRATIVE: CASE EVENT DATE: 20190401
